FAERS Safety Report 5454674-7 (Version None)
Quarter: 2007Q3

REPORT INFORMATION
  Report Type: 
  Country: None (occurrence: None)
  Receive Date: 20070917
  Receipt Date: 20060830
  Transmission Date: 20080115
  Serious: No
  Sender: FDA-Public Use
  Company Number: BR-ASTRAZENECA-2006UW17460

PATIENT
  Age: 75 Year
  Sex: Female

DRUGS (2)
  1. SEROQUEL [Suspect]
     Indication: SCHIZOPHRENIA
     Route: 048
     Dates: start: 20051001
  2. TORLOS [Concomitant]
     Indication: HYPERTENSION

REACTIONS (1)
  - IRRITABILITY [None]
